FAERS Safety Report 5121452-8 (Version None)
Quarter: 2006Q4

REPORT INFORMATION
  Report Type: 
  Country: None (occurrence: None)
  Receive Date: 20061003
  Receipt Date: 20060922
  Transmission Date: 20070319
  Serious: Yes (Other)
  Sender: FDA-Public Use
  Company Number: 2006112052

PATIENT
  Age: 40 Year
  Sex: Female

DRUGS (1)
  1. HALCION [Suspect]
     Dosage: ORAL
     Route: 048

REACTIONS (9)
  - ABNORMAL BEHAVIOUR [None]
  - ARTERIOVENOUS FISTULA [None]
  - DYSCALCULIA [None]
  - ELECTROENCEPHALOGRAM ABNORMAL [None]
  - INTENTIONAL OVERDOSE [None]
  - KIDNEY INFECTION [None]
  - RETROGRADE AMNESIA [None]
  - SUBARACHNOID HAEMORRHAGE [None]
  - SUICIDE ATTEMPT [None]
